FAERS Safety Report 4738488-9 (Version None)
Quarter: 2005Q3

REPORT INFORMATION
  Report Type: 
  Country: None (occurrence: None)
  Receive Date: 20050809
  Receipt Date: 20050802
  Transmission Date: 20060218
  Serious: Yes (Hospitalization)
  Sender: FDA-Public Use
  Company Number: GB-BRISTOL-MYERS SQUIBB COMPANY-13059258

PATIENT
  Age: 35 Year
  Sex: Female

DRUGS (8)
  1. EFAVIRENZ [Suspect]
     Indication: HIV INFECTION
  2. COMBIVIR [Suspect]
     Indication: HIV INFECTION
  3. RIFAMPICIN [Concomitant]
  4. ISONIAZID [Concomitant]
  5. ETHAMBUTOL HYDROCHLORIDE [Concomitant]
  6. PYRAZINAMIDE [Concomitant]
  7. PYRIDOXINE HCL [Concomitant]
  8. POTASSIUM PERMANGANATE [Concomitant]

REACTIONS (8)
  - BETA HAEMOLYTIC STREPTOCOCCAL INFECTION [None]
  - CERVICAL DYSPLASIA [None]
  - DYSURIA [None]
  - HERPES SIMPLEX [None]
  - IMMUNE RECONSTITUTION SYNDROME [None]
  - VAGINAL DISCHARGE [None]
  - VULVAL DISORDER [None]
  - VULVAL ULCERATION [None]
